FAERS Safety Report 7020526-4 (Version None)
Quarter: 2010Q3

REPORT INFORMATION
  Report Type: 
  Country: None (occurrence: None)
  Receive Date: 20100927
  Receipt Date: 20100915
  Transmission Date: 20110219
  Serious: Yes (Other)
  Sender: FDA-Public Use
  Company Number: 1000016141

PATIENT
  Age: 73 Year
  Sex: Female
  Weight: 52 kg

DRUGS (7)
  1. MEMANTINE [Suspect]
     Indication: DEMENTIA ALZHEIMER'S TYPE
     Dosage: 20 MG (10 MG, 2 IN 1 D), ORAL; 200 MG (100 MG, 2 IN 1 D)
     Route: 048
     Dates: start: 20100821, end: 20100831
  2. MEMANTINE [Suspect]
     Indication: DEMENTIA ALZHEIMER'S TYPE
     Dosage: 20 MG (10 MG, 2 IN 1 D), ORAL; 200 MG (100 MG, 2 IN 1 D)
     Route: 048
     Dates: start: 20080101
  3. LORAZEPAM [Concomitant]
  4. THYROXINE (LEVOTHYROXINE) (LEVOTHYROXINE) [Concomitant]
  5. SIMVASTATIN (SIMVASTATIN) (SUSPENSION) (SIMVASTATIN) [Concomitant]
  6. PROMAZINE (PROMAZINE) (SOLUTION) (PROMAZINE) [Concomitant]
  7. LANSOPRAZOLE [Concomitant]

REACTIONS (5)
  - ACCIDENTAL OVERDOSE [None]
  - CONFUSIONAL STATE [None]
  - SOMNOLENCE [None]
  - SPEECH DISORDER [None]
  - WRONG TECHNIQUE IN DRUG USAGE PROCESS [None]
